FAERS Safety Report 16308825 (Version 5)
Quarter: 2019Q2

REPORT INFORMATION
  Report Type: Spontaneous
  Country: US (occurrence: US)
  Receive Date: 20190514
  Receipt Date: 20190618
  Transmission Date: 20190711
  Serious: No
  Sender: FDA-Public Use
  Company Number: US-PFIZER INC-2019196740

PATIENT
  Age: 70 Year
  Sex: Female
  Weight: 67.58 kg

DRUGS (29)
  1. TIZANIDINE HCL [Suspect]
     Active Substance: TIZANIDINE HYDROCHLORIDE
     Dosage: UNK
  2. NOVOCAINE [Suspect]
     Active Substance: PROCAINE
     Dosage: UNK
  3. EPINEPHRINE. [Suspect]
     Active Substance: EPINEPHRINE
     Indication: ANAPHYLACTIC REACTION
     Dosage: UNK
  4. NEURONTIN [Suspect]
     Active Substance: GABAPENTIN
     Dosage: UNK
  5. BENZOCAINE. [Suspect]
     Active Substance: BENZOCAINE
     Dosage: UNK
  6. LORAZEPAM. [Suspect]
     Active Substance: LORAZEPAM
     Dosage: UNK
  7. CELEXA [CELECOXIB] [Suspect]
     Active Substance: CELECOXIB
     Dosage: UNK
  8. ACETAMINOPHEN;HYDROCODONE [Suspect]
     Active Substance: ACETAMINOPHEN\HYDROCODONE
     Dosage: UNK
  9. OXYCODONE [Suspect]
     Active Substance: OXYCODONE
     Dosage: UNK
  10. INCRUSE ELLIPTA [Suspect]
     Active Substance: UMECLIDINIUM BROMIDE
     Dosage: UNK
  11. DOXEPIN HCL [Suspect]
     Active Substance: DOXEPIN HYDROCHLORIDE
     Dosage: UNK
  12. FENTANYL CITRATE. [Suspect]
     Active Substance: FENTANYL CITRATE
     Dosage: UNK
  13. ASPIRIN [ACETYLSALICYLIC ACID] [Suspect]
     Active Substance: ASPIRIN
     Dosage: UNK
  14. BACLOFEN. [Suspect]
     Active Substance: BACLOFEN
     Dosage: UNK
  15. VENLAFAXINE HCL [Suspect]
     Active Substance: VENLAFAXINE HYDROCHLORIDE
     Dosage: UNK
  16. LASIX [Suspect]
     Active Substance: FUROSEMIDE
     Dosage: UNK
  17. DURAMORPH [Suspect]
     Active Substance: MORPHINE SULFATE
     Dosage: UNK
  18. PULMICORT TURBUHALER [Suspect]
     Active Substance: BUDESONIDE
     Dosage: UNK
  19. SYMBICORT [Suspect]
     Active Substance: BUDESONIDE\FORMOTEROL FUMARATE DIHYDRATE
     Dosage: UNK
  20. CYCLOBENZAPRINE HCL [Suspect]
     Active Substance: CYCLOBENZAPRINE HYDROCHLORIDE
     Dosage: UNK
  21. WELLBUTRIN SR [Suspect]
     Active Substance: BUPROPION HYDROCHLORIDE
     Dosage: UNK
  22. VENTOLIN [Suspect]
     Active Substance: ALBUTEROL SULFATE
     Dosage: UNK
  23. NORTRIPTYLINE HCL [Suspect]
     Active Substance: NORTRIPTYLINE HYDROCHLORIDE
     Dosage: UNK
  24. TRAMADOL HCL [Suspect]
     Active Substance: TRAMADOL HYDROCHLORIDE
     Dosage: UNK
  25. POTASSIUM CHLORIDE. [Suspect]
     Active Substance: POTASSIUM CHLORIDE
     Dosage: UNK
  26. SEPTRA [Suspect]
     Active Substance: SULFAMETHOXAZOLE\TRIMETHOPRIM
     Dosage: UNK
  27. ATROVENT [Suspect]
     Active Substance: IPRATROPIUM BROMIDE
     Dosage: UNK
  28. THEO-DUR [Suspect]
     Active Substance: THEOPHYLLINE ANHYDROUS
     Dosage: UNK
  29. CARAFATE [Suspect]
     Active Substance: SUCRALFATE
     Dosage: UNK

REACTIONS (1)
  - Drug hypersensitivity [Unknown]

NARRATIVE: CASE EVENT DATE: 20190402
